FAERS Safety Report 4645291-7 (Version None)
Quarter: 2005Q2

REPORT INFORMATION
  Report Type: 
  Country: None (occurrence: None)
  Receive Date: 20050331
  Receipt Date: 20050114
  Transmission Date: 20051028
  Serious: No
  Sender: FDA-Public Use
  Company Number: 04P-163-0280829

PATIENT
  Age: 60 Year
  Sex: Female
  Weight: 46.2669 kg

DRUGS (11)
  1. HUMIRA [Suspect]
     Indication: RHEUMATOID ARTHRITIS
     Dosage: 40 MG, 1 IN 2 WK, SUBCUTANEOUS, 40 MG, 1 IN 2 WK, SUBCUTANEOUS
     Route: 058
     Dates: start: 20040501, end: 20040801
  2. HUMIRA [Suspect]
     Indication: RHEUMATOID ARTHRITIS
     Dosage: 40 MG, 1 IN 2 WK, SUBCUTANEOUS, 40 MG, 1 IN 2 WK, SUBCUTANEOUS
     Route: 058
     Dates: start: 20041101
  3. DOXYCYCLINE HYDROCHLORIDE [Concomitant]
  4. AZATHIOPRINE [Concomitant]
  5. MELOXICAM [Concomitant]
  6. PANTOPRAZOLE [Concomitant]
  7. CITALOPRAM HYDROBROMIDE [Concomitant]
  8. GLYCOPYRRONIUM BROMIDE [Concomitant]
  9. CRESTOR [Concomitant]
  10. TELMISARTAN [Concomitant]
  11. AXOTAL [Concomitant]

REACTIONS (8)
  - ARTHROPOD BITE [None]
  - CONDITION AGGRAVATED [None]
  - INJECTION SITE PAIN [None]
  - LOCAL SWELLING [None]
  - MIGRAINE [None]
  - SKIN TIGHTNESS [None]
  - SWELLING FACE [None]
  - THROAT IRRITATION [None]
